FAERS Safety Report 8522851-4 (Version None)
Quarter: 2012Q3

REPORT INFORMATION
  Report Type: 
  Country: None (occurrence: None)
  Receive Date: 20120720
  Receipt Date: 20120713
  Transmission Date: 20120928
  Serious: Yes (Hospitalization)
  Sender: FDA-Public Use
  Company Number: DE-BIOGENIDEC-2012BI005449

PATIENT
  Age: 49 Year
  Sex: Male

DRUGS (4)
  1. TYSABRI [Suspect]
     Indication: MULTIPLE SCLEROSIS
     Route: 042
     Dates: start: 20080104
  2. ACETAMINOPHEN [Concomitant]
  3. NOVALGIN [Concomitant]
  4. ENOXAPARIN SODIUM [Concomitant]

REACTIONS (1)
  - LOWER LIMB FRACTURE [None]
